FAERS Safety Report 14798593 (Version 1)
Quarter: 2018Q2

REPORT INFORMATION
  Report Type: Spontaneous
  Country: FR (occurrence: FR)
  Receive Date: 20180424
  Receipt Date: 20180424
  Transmission Date: 20180711
  Serious: Yes (Other)
  Sender: FDA-Public Use
  Company Number: FR-EMD SERONO-E2B_90038865

PATIENT
  Age: 15 Year
  Sex: Male

DRUGS (2)
  1. OVITRELLE [Suspect]
     Active Substance: CHORIOGONADOTROPIN ALFA
     Indication: SECONDARY HYPOGONADISM
     Route: 058
     Dates: start: 20180205
  2. GONAL-F [Suspect]
     Active Substance: FOLLITROPIN
     Indication: SECONDARY HYPOGONADISM
     Route: 058
     Dates: start: 20180205

REACTIONS (1)
  - Depressed mood [Not Recovered/Not Resolved]

NARRATIVE: CASE EVENT DATE: 20180225
